FAERS Safety Report 12960783 (Version 1)
Quarter: 2016Q4

REPORT INFORMATION
  Report Type: Spontaneous
  Country: US (occurrence: US)
  Receive Date: 20161121
  Receipt Date: 20161121
  Transmission Date: 20170207
  Serious: No
  Sender: FDA-Public Use
  Company Number: US-NEOS THERAPEUTICS, LP-2016NEO00029

PATIENT
  Age: 8 Year
  Sex: Male

DRUGS (3)
  1. ADZENYS XR-ODT [Suspect]
     Active Substance: AMPHETAMINE
     Indication: ATTENTION DEFICIT/HYPERACTIVITY DISORDER
     Dosage: 12.5 MG, 1X/DAY
     Route: 048
     Dates: start: 20160830, end: 20160909
  2. TRAZODONE [Concomitant]
     Active Substance: TRAZODONE HYDROCHLORIDE
     Dosage: UNKNOWN
  3. ADZENYS XR-ODT [Suspect]
     Active Substance: AMPHETAMINE
     Dosage: 3.1 MG, 1X/DAY
     Route: 048
     Dates: start: 20160909, end: 20160927

REACTIONS (4)
  - Abnormal behaviour [Unknown]
  - Personality change [Unknown]
  - Skin exfoliation [Recovered/Resolved]
  - Pruritus [Recovered/Resolved]

NARRATIVE: CASE EVENT DATE: 201609
